FAERS Safety Report 25240958 (Version 3)
Quarter: 2025Q2

REPORT INFORMATION
  Report Type: Spontaneous
  Country: US (occurrence: US)
  Receive Date: 20250425
  Receipt Date: 20250630
  Transmission Date: 20250716
  Serious: Yes (Other)
  Sender: PFIZER
  Company Number: US-PFIZER INC-202500088071

PATIENT
  Age: 38 Year
  Sex: Male

DRUGS (7)
  1. LITFULO [Suspect]
     Active Substance: RITLECITINIB TOSYLATE
     Indication: Alopecia areata
     Dosage: 50 MG, 1X/DAY
     Route: 048
  2. MOMETASONE [Concomitant]
     Active Substance: MOMETASONE
     Dosage: UNK, 1X/DAY (AM)
     Route: 061
  3. OPZELURA [Concomitant]
     Active Substance: RUXOLITINIB PHOSPHATE
     Dosage: UNK, 1X/DAY (PM)
     Route: 061
  4. BETAMETHASONE VALERATE [Concomitant]
     Active Substance: BETAMETHASONE VALERATE
     Route: 061
  5. CLOBETASOL [Concomitant]
     Active Substance: CLOBETASOL
     Dosage: UNK, 2X/DAY (FREQUENCY BID (TWICE A DAY))
     Route: 061
  6. VTAMA [Concomitant]
     Active Substance: TAPINAROF
     Dosage: UNK, 1X/DAY (FREQUENCY-QAM (EVERY MORNING))
     Route: 061
  7. MINOXIDIL [Concomitant]
     Active Substance: MINOXIDIL
     Route: 048

REACTIONS (5)
  - Parotidectomy [Unknown]
  - Dermal cyst [Unknown]
  - Condition aggravated [Unknown]
  - Blood pressure increased [Unknown]
  - Depression [Unknown]

NARRATIVE: CASE EVENT DATE: 20250102
